FAERS Safety Report 8376250-9 (Version None)
Quarter: 2012Q2

REPORT INFORMATION
  Report Type: 
  Country: None (occurrence: None)
  Receive Date: 20120522
  Receipt Date: 20120507
  Transmission Date: 20120825
  Serious: Yes (Other)
  Sender: FDA-Public Use
  Company Number: JP-VALEANT-2012VX002131

PATIENT

DRUGS (4)
  1. FLUOROURACIL [Suspect]
     Dosage: DOSE UNIT:600
     Route: 042
  2. DOCETAXEL [Suspect]
     Dosage: DOSE UNIT:60
     Route: 042
  3. CISPLATIN [Suspect]
     Dosage: DOSE UNIT:70
     Route: 042
  4. DEXAMETHASONE [Concomitant]
     Route: 065

REACTIONS (1)
  - FEBRILE NEUTROPENIA [None]
